FAERS Safety Report 5874069-1 (Version None)
Quarter: 2008Q3

REPORT INFORMATION
  Report Type: 
  Country: None (occurrence: None)
  Receive Date: 20080829
  Receipt Date: 20070309
  Transmission Date: 20090109
  Serious: Yes (Other)
  Sender: FDA-Public Use
  Company Number: 2008S1012424

PATIENT
  Sex: Female

DRUGS (8)
  1. CLARITHROMYCIN [Suspect]
     Indication: CHRONIC OBSTRUCTIVE PULMONARY DISEASE
     Dosage: 250 MG; ORAL
     Route: 048
     Dates: start: 20070209, end: 20070212
  2. CLARITHROMYCIN [Suspect]
     Indication: LOWER RESPIRATORY TRACT INFECTION
     Dosage: 250 MG; ORAL
     Route: 048
     Dates: start: 20070209, end: 20070212
  3. BECLOMETHASONE DIPROPIONATE [Concomitant]
  4. BENDROFLUAZIDE (BENDROFLUMETHIAZIDE) [Concomitant]
  5. CORACTEN (NIFEDIPINE) [Concomitant]
  6. IRBESARTAN [Concomitant]
  7. SALBUTAMOL (SALBUTAMOL) [Concomitant]
  8. SALMETEROL (SALMETEROL) [Concomitant]

REACTIONS (4)
  - ASTHENIA [None]
  - HYPONATRAEMIA [None]
  - MALAISE [None]
  - NAUSEA [None]
